FAERS Safety Report 20659883 (Version 3)
Quarter: 2022Q2

REPORT INFORMATION
  Report Type: Spontaneous
  Country: US (occurrence: US)
  Receive Date: 20220331
  Receipt Date: 20220623
  Transmission Date: 20220721
  Serious: No
  Sender: FDA-Public Use
  Company Number: US-BRISTOL-MYERS SQUIBB COMPANY-2022-013000

PATIENT
  Age: 65 Year
  Sex: Male

DRUGS (2)
  1. POMALYST [Suspect]
     Active Substance: POMALIDOMIDE
     Indication: Plasma cell myeloma
     Route: 048
     Dates: start: 201910
  2. POMALYST [Suspect]
     Active Substance: POMALIDOMIDE
     Route: 048

REACTIONS (8)
  - Lymphadenopathy [Unknown]
  - Cough [Unknown]
  - Rhinorrhoea [Unknown]
  - Hypoacusis [Unknown]
  - Pain in extremity [Unknown]
  - Pain in extremity [Unknown]
  - Joint swelling [Unknown]
  - Intentional product use issue [Unknown]
